FAERS Safety Report 7437455-4 (Version None)
Quarter: 2011Q2

REPORT INFORMATION
  Report Type: 
  Country: None (occurrence: None)
  Receive Date: 20110426
  Receipt Date: 20100624
  Transmission Date: 20111010
  Serious: No
  Sender: FDA-Public Use
  Company Number: US-PFIZER INC-2010060748

PATIENT
  Sex: Female
  Weight: 58.05 kg

DRUGS (1)
  1. ESTRING [Suspect]
     Indication: VULVOVAGINAL DRYNESS
     Dosage: UNK
     Route: 067
     Dates: start: 20100101, end: 20100428

REACTIONS (1)
  - VAGINAL INFECTION [None]
